FAERS Safety Report 8984847 (Version 1)
Quarter: 2012Q4

REPORT INFORMATION
  Report Type: 
  Country: CA (occurrence: CA)
  Receive Date: 20121226
  Receipt Date: 20121226
  Transmission Date: 20130627
  Serious: Yes (Other)
  Sender: FDA-Public Use
  Company Number: PHHY2012CA119160

PATIENT
  Sex: Female

DRUGS (4)
  1. ACLASTA [Suspect]
     Indication: OSTEOPOROSIS
     Dosage: UNK UKN, UNK
     Dates: start: 20080805
  2. ACLASTA [Suspect]
     Dosage: UNK UKN, UNK
     Dates: start: 20090814
  3. ACLASTA [Suspect]
     Dosage: UNK UKN, UNK
     Dates: start: 20101201
  4. ACLASTA [Suspect]
     Dosage: UNK UKN, UNK
     Dates: start: 20111222

REACTIONS (2)
  - Cerebrovascular accident [Unknown]
  - Amnesia [Unknown]
